FAERS Safety Report 12137566 (Version 1)
Quarter: 2016Q1

REPORT INFORMATION
  Report Type: Report from Study
  Country: US (occurrence: US)
  Receive Date: 20160302
  Receipt Date: 20160302
  Transmission Date: 20160526
  Serious: Yes (Hospitalization, Other)
  Sender: FDA-Public Use
  Company Number: US-ACTELION-A-NJ2016-132017

PATIENT
  Age: 34 Year
  Sex: Male

DRUGS (1)
  1. VELETRI [Suspect]
     Active Substance: EPOPROSTENOL
     Indication: PULMONARY ARTERIAL HYPERTENSION
     Dosage: 20 NG/KG, PER MIN
     Route: 042
     Dates: start: 20151228

REACTIONS (10)
  - Fall [Unknown]
  - Hypoaesthesia [Unknown]
  - Respiratory rate decreased [Unknown]
  - Dyspnoea [Unknown]
  - Pain in jaw [Unknown]
  - Feeling abnormal [Unknown]
  - Hypotension [Unknown]
  - Hyperhidrosis [Unknown]
  - Loss of consciousness [Unknown]
  - Incoherent [Unknown]

NARRATIVE: CASE EVENT DATE: 20160218
